FAERS Safety Report 24595562 (Version 2)
Quarter: 2024Q4

REPORT INFORMATION
  Report Type: Report from Study
  Country: US (occurrence: US)
  Receive Date: 20241109
  Receipt Date: 20241219
  Transmission Date: 20250114
  Serious: Yes (Hospitalization, Other)
  Sender: ABBVIE
  Company Number: US-ABBVIE-5954803

PATIENT
  Age: 78 Year
  Sex: Female

DRUGS (1)
  1. RINVOQ [Suspect]
     Active Substance: UPADACITINIB
     Indication: Dermatitis atopic
     Route: 048
     Dates: start: 20240603, end: 20241023

REACTIONS (10)
  - Haemoglobin decreased [Unknown]
  - Cough [Not Recovered/Not Resolved]
  - Multiple allergies [Unknown]
  - Asthma [Unknown]
  - Visual impairment [Unknown]
  - Unevaluable event [Unknown]
  - Skin plaque [Recovering/Resolving]
  - Muscle disorder [Unknown]
  - Anaemia [Not Recovered/Not Resolved]
  - Rash macular [Recovering/Resolving]

NARRATIVE: CASE EVENT DATE: 20240101
